FAERS Safety Report 17957996 (Version 1)
Quarter: 2020Q2

REPORT INFORMATION
  Report Type: Spontaneous
  Country: CN (occurrence: CN)
  Receive Date: 20200629
  Receipt Date: 20200629
  Transmission Date: 20200714
  Serious: Yes (Other)
  Sender: FDA-Public Use
  Company Number: CN-PFIZER INC-2020246843

PATIENT
  Age: 19 Year
  Sex: Male
  Weight: 65 kg

DRUGS (4)
  1. DUO TA KE MEI [Concomitant]
     Indication: THERAPEUTIC PROCEDURE
     Dosage: 10 MG, 1X/DAY
     Route: 041
     Dates: start: 20200122, end: 20200122
  2. ENDOXAN [CYCLOPHOSPHAMIDE] [Concomitant]
     Active Substance: CYCLOPHOSPHAMIDE
     Indication: THERAPEUTIC PROCEDURE
     Dosage: 1350 MG, 1X/DAY
     Route: 041
     Dates: start: 20200124, end: 20200124
  3. ZAVEDOS [Suspect]
     Active Substance: IDARUBICIN
     Indication: NEOPLASM
     Dosage: 10 MG, 1X/DAY
     Route: 041
     Dates: start: 20200125, end: 20200127
  4. PEGASPARGASE [Suspect]
     Active Substance: PEGASPARGASE
     Indication: NEOPLASM
     Dosage: 5 MG, 1X/DAY
     Route: 030
     Dates: start: 20200201, end: 20200201

REACTIONS (2)
  - Nephrolithiasis [Unknown]
  - Thrombosis [Recovered/Resolved]

NARRATIVE: CASE EVENT DATE: 20200219
